FAERS Safety Report 25679652 (Version 4)
Quarter: 2025Q4

REPORT INFORMATION
  Report Type: Spontaneous
  Country: US (occurrence: US)
  Receive Date: 20250814
  Receipt Date: 20251110
  Transmission Date: 20260118
  Serious: Yes (Hospitalization, Other)
  Sender: SUNOVION
  Company Number: US-SMPA-2025SPA010264

PATIENT
  Age: 93 Year
  Sex: Female

DRUGS (1)
  1. GEMTESA [Suspect]
     Active Substance: VIBEGRON
     Indication: Hypertonic bladder
     Dosage: 75 MG
     Route: 048

REACTIONS (3)
  - Loss of consciousness [Unknown]
  - Peripheral swelling [Unknown]
  - Therapeutic product effect delayed [Unknown]
